FAERS Safety Report 5521731-6 (Version None)
Quarter: 2007Q4

REPORT INFORMATION
  Report Type: 
  Country: None (occurrence: None)
  Receive Date: 20071120
  Receipt Date: 20071114
  Transmission Date: 20080405
  Serious: Yes (Other)
  Sender: FDA-Public Use
  Company Number: US-ASTRAZENECA-2007UW26502

PATIENT
  Age: 68 Year
  Sex: Female
  Weight: 81.6 kg

DRUGS (4)
  1. ARIMIDEX [Suspect]
     Indication: BREAST CANCER
     Route: 048
     Dates: start: 20020301
  2. ATENOLOL [Concomitant]
     Route: 048
  3. AZOR [Concomitant]
  4. GEMFIBROZIL [Concomitant]

REACTIONS (5)
  - ANKLE FRACTURE [None]
  - BREAST PAIN [None]
  - BREAST SWELLING [None]
  - LACTATION DISORDER [None]
  - WEIGHT INCREASED [None]
